FAERS Safety Report 9181697 (Version 1)
Quarter: 2013Q1

REPORT INFORMATION
  Report Type: Spontaneous
  Country: US (occurrence: None)
  Receive Date: 20130321
  Receipt Date: 20130321
  Transmission Date: 20140127
  Serious: Yes (Hospitalization)
  Sender: FDA-Public Use
  Company Number: None

PATIENT
  Age: 45 Year
  Sex: Female
  Weight: 118.5 kg

DRUGS (1)
  1. METFORMIN [Suspect]
     Route: 048

REACTIONS (2)
  - Lactic acidosis [None]
  - Disease recurrence [None]
